FAERS Safety Report 7990196-7 (Version None)
Quarter: 2011Q4

REPORT INFORMATION
  Report Type: 
  Country: None (occurrence: None)
  Receive Date: 20111219
  Receipt Date: 20111205
  Transmission Date: 20120403
  Serious: Yes (Other)
  Sender: FDA-Public Use
  Company Number: JP-SANOFI-AVENTIS-2011SA063707

PATIENT
  Age: 60 Year
  Sex: Male
  Weight: 50 kg

DRUGS (85)
  1. PLAVIX [Suspect]
     Route: 065
     Dates: start: 20100529, end: 20101117
  2. HEPARIN [Concomitant]
     Dosage: DOSE:8000 UNIT(S)
     Route: 042
     Dates: start: 20100528, end: 20100528
  3. HEPARIN [Concomitant]
     Dosage: 10-15 ML/HR CONTINUOUS
     Route: 041
     Dates: start: 20100528, end: 20100529
  4. ALL OTHER THERAPEUTIC PRODUCTS [Concomitant]
     Route: 048
     Dates: start: 20100528, end: 20100528
  5. FAMOTIDINE [Concomitant]
     Route: 048
     Dates: start: 20100528, end: 20100528
  6. CARVEDILOL [Concomitant]
     Route: 048
     Dates: start: 20100602, end: 20100603
  7. SALINE [Concomitant]
     Dosage: 20-120 ML/HR CONTINUOUS
     Route: 041
     Dates: start: 20100528, end: 20100530
  8. SALINE [Concomitant]
     Indication: CARDIAC FUNCTION TEST
     Dosage: 20-120 ML/HR CONTINUOUS
     Route: 041
     Dates: start: 20100528, end: 20100530
  9. SALINE [Concomitant]
     Route: 041
     Dates: start: 20110318, end: 20110318
  10. SALINE [Concomitant]
     Route: 041
     Dates: start: 20110318, end: 20110318
  11. CEFAZOLIN SODIUM [Concomitant]
     Route: 041
     Dates: start: 20100528, end: 20100528
  12. NOVO-PROTAMINE SULFATE [Concomitant]
     Indication: VENTRICULAR TACHYCARDIA
     Route: 042
     Dates: start: 20100621, end: 20100621
  13. CONTRAST MEDIA [Concomitant]
     Route: 022
     Dates: start: 20101117, end: 20101117
  14. CHLORPHENIRAMINE MALEATE [Concomitant]
     Indication: SKIN EROSION
     Route: 048
     Dates: start: 20100621, end: 20100621
  15. KAYTWO N [Concomitant]
     Route: 041
     Dates: start: 20110527, end: 20110527
  16. HEPARIN [Concomitant]
     Dosage: 10-15 ML/HR CONTINUOUS
     Route: 041
     Dates: start: 20100528, end: 20100529
  17. HEPARIN [Concomitant]
     Dosage: TAKEN FROM AND TAKEN TO: 18-MAR-2011 DOSE:3000 UNIT(S)
     Route: 048
     Dates: start: 20110318, end: 20110318
  18. LANSOPRAZOLE [Concomitant]
     Indication: PROPHYLAXIS
     Route: 048
     Dates: start: 20100528
  19. SIGMART [Concomitant]
     Dosage: 5-10 ML/H CONTINOUS
     Route: 041
     Dates: start: 20100528, end: 20100529
  20. PRAVASTATIN SODIUM [Concomitant]
     Route: 048
     Dates: start: 20100528
  21. PLETAL [Concomitant]
     Route: 048
     Dates: start: 20100528, end: 20100601
  22. ACECOL [Concomitant]
     Route: 048
     Dates: start: 20100610
  23. SALINE [Concomitant]
     Dosage: 20-120 ML/HR CONTINUOUS
     Route: 041
     Dates: start: 20100528, end: 20100530
  24. SALINE [Concomitant]
     Dosage: 2-3 ML/H CONTINUOUS
     Route: 041
     Dates: start: 20100528, end: 20100530
  25. SALINE [Concomitant]
     Route: 041
     Dates: start: 20101117, end: 20101117
  26. SALINE [Concomitant]
     Route: 041
     Dates: start: 20110318, end: 20110318
  27. CONTRAST MEDIA [Concomitant]
     Route: 022
     Dates: start: 20100621, end: 20100621
  28. CONTRAST MEDIA [Concomitant]
     Route: 022
     Dates: start: 20100621, end: 20100621
  29. CHLORPHENIRAMINE MALEATE [Concomitant]
     Route: 048
     Dates: start: 20100621, end: 20100621
  30. BROTIZOLAM [Concomitant]
     Indication: INSOMNIA
     Route: 048
     Dates: start: 20110314, end: 20110317
  31. HEPARIN [Concomitant]
     Dosage: DOSE:8000 UNIT(S)
     Route: 042
     Dates: start: 20100528, end: 20100528
  32. CARVEDILOL [Concomitant]
     Route: 048
     Dates: start: 20100531, end: 20100601
  33. CARVEDILOL [Concomitant]
     Route: 048
     Dates: start: 20101106, end: 20110302
  34. SALINE [Concomitant]
     Dosage: 10-15 ML/H CONTINUOUS
     Route: 041
     Dates: start: 20100528, end: 20100529
  35. SALINE [Concomitant]
     Dosage: 10-15 ML/H CONTINUOUS
     Route: 041
     Dates: start: 20100528, end: 20100529
  36. SALINE [Concomitant]
     Dosage: 100 ML/HR
     Route: 041
     Dates: start: 20100621, end: 20100621
  37. CEFAZOLIN SODIUM [Concomitant]
     Route: 041
     Dates: start: 20110318, end: 20110318
  38. GLYCERYL TRINITRATE [Concomitant]
     Route: 042
     Dates: start: 20110318, end: 20110318
  39. CONTRAST MEDIA [Concomitant]
     Route: 022
     Dates: start: 20100528, end: 20100528
  40. FAMOTIDINE [Concomitant]
     Indication: PROPHYLAXIS
     Dosage: 20 MG X 1-2 DOSES PER DAY
     Route: 042
     Dates: start: 20100528, end: 20100530
  41. HEPARIN [Concomitant]
     Indication: CARDIAC FUNCTION TEST
     Dosage: DOSE:8000 UNIT(S)
     Route: 042
     Dates: start: 20100528, end: 20100528
  42. HEPARIN [Concomitant]
     Dosage: 2-3 ML/HR CONTINUOUS
     Route: 041
     Dates: start: 20100528, end: 20100530
  43. HEPARIN [Concomitant]
     Dosage: DOSE:5000 UNIT(S)
     Route: 048
     Dates: start: 20101117, end: 20101117
  44. HEPARIN [Concomitant]
     Dosage: TAKEN FROM AND TAKEN TO: 18-MAR-2011 DOSE:3000 UNIT(S)
     Route: 048
     Dates: start: 20110318, end: 20110318
  45. MAGNESIUM OXIDE [Concomitant]
     Indication: PROPHYLAXIS
     Route: 048
     Dates: start: 20100528
  46. OLMESARTAN MEDOXOMIL [Concomitant]
     Route: 048
     Dates: start: 20100528, end: 20100609
  47. CARVEDILOL [Concomitant]
     Route: 048
     Dates: start: 20100530, end: 20100530
  48. SALINE [Concomitant]
     Dosage: 100 ML/HR
     Route: 041
     Dates: start: 20100621, end: 20100621
  49. SALINE [Concomitant]
     Route: 041
     Dates: start: 20101117, end: 20101117
  50. CEFAZOLIN SODIUM [Concomitant]
     Indication: VENTRICULAR TACHYCARDIA
     Dosage: 1 G X 1-2 DOSES
     Route: 042
     Dates: start: 20100528, end: 20100530
  51. GLYCERYL TRINITRATE [Concomitant]
     Route: 022
     Dates: start: 20100621, end: 20100621
  52. GLYCERYL TRINITRATE [Concomitant]
     Route: 022
     Dates: start: 20101117, end: 20101117
  53. UNASYN [Concomitant]
     Route: 048
     Dates: start: 20101117, end: 20101120
  54. CHLORPHENIRAMINE MALEATE [Concomitant]
     Indication: SWELLING
     Route: 048
     Dates: start: 20100621, end: 20100621
  55. HEPARIN [Concomitant]
     Dosage: DOSE:5000 UNIT(S)
     Route: 042
     Dates: start: 20100621, end: 20100621
  56. HEPARIN [Concomitant]
     Dosage: 2-3 ML/HR CONTINUOUS
     Route: 041
     Dates: start: 20100528, end: 20100530
  57. HEPARIN [Concomitant]
     Dosage: TAKEN FROM AND TAKEN TO: 18-MAR-2011 DOSE:3000 UNIT(S)
     Route: 048
     Dates: start: 20110318, end: 20110318
  58. SALINE [Concomitant]
     Dosage: 10-15 ML/H CONTINUOUS
     Route: 041
     Dates: start: 20100528, end: 20100529
  59. SALINE [Concomitant]
     Dosage: 2-3 ML/H CONTINUOUS
     Route: 041
     Dates: start: 20100528, end: 20100530
  60. UNASYN [Concomitant]
     Indication: PROPHYLAXIS
     Route: 048
     Dates: start: 20110318, end: 20110321
  61. HEPARIN [Concomitant]
     Dosage: DOSE:5000 UNIT(S)
     Route: 042
     Dates: start: 20100621, end: 20100621
  62. HEPARIN [Concomitant]
     Dosage: DOSE:5000 UNIT(S)
     Route: 042
     Dates: start: 20100621, end: 20100621
  63. CARVEDILOL [Concomitant]
     Route: 048
     Dates: start: 20100604, end: 20100614
  64. SALINE [Concomitant]
     Dosage: 2-3 ML/H CONTINUOUS
     Route: 041
     Dates: start: 20100528, end: 20100530
  65. SALINE [Concomitant]
     Route: 041
     Dates: start: 20101117, end: 20101117
  66. CEFAZOLIN SODIUM [Concomitant]
     Route: 041
     Dates: start: 20100528, end: 20100528
  67. NOVO-PROTAMINE SULFATE [Concomitant]
     Route: 042
     Dates: start: 20110318, end: 20110318
  68. ASPIRIN [Concomitant]
     Route: 048
     Dates: start: 20100529
  69. HEPARIN [Concomitant]
     Dosage: 2-3 ML/HR CONTINUOUS
     Route: 041
     Dates: start: 20100528, end: 20100530
  70. SIGMART [Concomitant]
     Route: 022
     Dates: start: 20100528, end: 20100528
  71. CARVEDILOL [Concomitant]
     Route: 048
     Dates: start: 20100615, end: 20101105
  72. CARVEDILOL [Concomitant]
     Route: 048
     Dates: start: 20110303
  73. CEFAZOLIN SODIUM [Concomitant]
     Indication: PROPHYLAXIS
     Dosage: 1 G X 1-2 DOSES
     Route: 042
     Dates: start: 20100528, end: 20100530
  74. GLYCERYL TRINITRATE [Concomitant]
     Route: 022
     Dates: start: 20100528, end: 20100528
  75. CONTRAST MEDIA [Concomitant]
     Route: 022
     Dates: start: 20100528, end: 20100528
  76. PROTERNOL-L [Concomitant]
     Indication: VENTRICULAR TACHYCARDIA
     Route: 042
     Dates: start: 20110318, end: 20110318
  77. FAMOTIDINE [Concomitant]
     Indication: PROPHYLAXIS
     Dosage: 1-2 DOSES
     Route: 040
     Dates: start: 20100528, end: 20100530
  78. HEPARIN [Concomitant]
     Dosage: 10-15 ML/HR CONTINUOUS
     Route: 041
     Dates: start: 20100528, end: 20100529
  79. HEPARIN [Concomitant]
     Dosage: DOSE:5000 UNIT(S)
     Route: 048
     Dates: start: 20101117, end: 20101117
  80. HEPARIN [Concomitant]
     Dosage: DOSE:5000 UNIT(S)
     Route: 048
     Dates: start: 20101117, end: 20101117
  81. SIGMART [Concomitant]
     Route: 048
     Dates: start: 20100529, end: 20110303
  82. SALINE [Concomitant]
     Dosage: 100 ML/HR
     Route: 041
     Dates: start: 20100621, end: 20100621
  83. CEFAZOLIN SODIUM [Concomitant]
     Route: 041
     Dates: start: 20110318, end: 20110318
  84. CONTRAST MEDIA [Concomitant]
     Route: 022
     Dates: start: 20101117, end: 20101117
  85. TRELAN G-50 [Concomitant]
     Route: 048
     Dates: start: 20100610, end: 20100610

REACTIONS (2)
  - VENTRICULAR EXTRASYSTOLES [None]
  - INTRACARDIAC THROMBUS [None]
